FAERS Safety Report 9874821 (Version 1)
Quarter: 2014Q1

REPORT INFORMATION
  Report Type: Other
  Country: US (occurrence: US)
  Receive Date: 20140206
  Receipt Date: 20140206
  Transmission Date: 20141002
  Serious: No
  Sender: FDA-Public Use
  Company Number: US-ACORDA-ACO_35283_2013

PATIENT
  Age: 50 Year
  Sex: Female
  Weight: 71.66 kg

DRUGS (3)
  1. AMPYRA [Suspect]
     Indication: GAIT DISTURBANCE
     Dosage: UNK
  2. CORTICOSTEROIDS [Suspect]
     Indication: MULTIPLE SCLEROSIS
  3. FLUOXETINE [Concomitant]
     Indication: PRODUCT USED FOR UNKNOWN INDICATION
     Dosage: 10 MG, UNK

REACTIONS (5)
  - Blood urine present [Not Recovered/Not Resolved]
  - Gingivitis [Not Recovered/Not Resolved]
  - Ear infection [Not Recovered/Not Resolved]
  - Tooth disorder [Unknown]
  - Nasopharyngitis [Unknown]
